FAERS Safety Report 8360384-9 (Version None)
Quarter: 2012Q2

REPORT INFORMATION
  Report Type: 
  Country: None (occurrence: None)
  Receive Date: 20120515
  Receipt Date: 20120508
  Transmission Date: 20120825
  Serious: Yes (Hospitalization)
  Sender: FDA-Public Use
  Company Number: US-BAYER-2012-038329

PATIENT
  Age: 52 Year
  Sex: Female
  Weight: 51.247 kg

DRUGS (4)
  1. FERROUS SULFATE TAB [Concomitant]
     Indication: BLOOD IRON DECREASED
     Dosage: DAILY DOSE 65 MG
  2. NEXIUM [Concomitant]
     Indication: GASTRIC PH DECREASED
     Dosage: DAILY DOSE 40 MG
     Dates: start: 20070101
  3. MIRENA [Suspect]
     Indication: MENORRHAGIA
     Dosage: 20 ?G/D, CONT
     Route: 015
     Dates: start: 20120201
  4. MULTIPLE VITAMINS [Concomitant]
     Dosage: DAILY DOSE 2 DF

REACTIONS (5)
  - MENOMETRORRHAGIA [None]
  - DISCOMFORT [None]
  - MENORRHAGIA [None]
  - WEIGHT INCREASED [None]
  - UTERINE PAIN [None]
